FAERS Safety Report 7099237-5 (Version None)
Quarter: 2010Q4

REPORT INFORMATION
  Report Type: 
  Country: None (occurrence: None)
  Receive Date: 20101112
  Receipt Date: 20101103
  Transmission Date: 20110411
  Serious: Yes (Other)
  Sender: FDA-Public Use
  Company Number: BR-ASTRAZENECA-2010SE52425

PATIENT
  Age: 84 Year
  Sex: Female
  Weight: 69 kg

DRUGS (7)
  1. CRESTOR [Suspect]
     Indication: HYPERCHOLESTEROLAEMIA
     Route: 048
     Dates: start: 20100901, end: 20101101
  2. DIOVAN [Concomitant]
     Indication: HYPERTENSION
     Route: 048
     Dates: start: 20080101
  3. CARVEDILOL [Concomitant]
     Indication: CARDIAC OPERATION
     Dosage: TWO TIMES DAY
     Route: 048
     Dates: start: 20080101
  4. PRESSAT [Concomitant]
     Indication: HYPERTENSION
     Dosage: DAILY
     Route: 048
     Dates: start: 20080101
  5. PLAVIX [Concomitant]
     Indication: CARDIOVASCULAR DISORDER
     Dosage: DAILY
     Route: 048
     Dates: start: 20080101
  6. PRISTIQ [Concomitant]
     Indication: DEPRESSION
     Dosage: DAILY
     Route: 048
     Dates: start: 20080101
  7. LORAX [Concomitant]
     Indication: INSOMNIA
     Route: 048
     Dates: start: 20000101

REACTIONS (4)
  - MYALGIA [None]
  - PAIN [None]
  - PAIN IN EXTREMITY [None]
  - TINNITUS [None]
